FAERS Safety Report 4495685-8 (Version None)
Quarter: 2004Q4

REPORT INFORMATION
  Report Type: 
  Country: None (occurrence: None)
  Receive Date: 20041108
  Receipt Date: 20030605
  Transmission Date: 20050328
  Serious: Yes (Hospitalization, Other)
  Sender: FDA-Public Use
  Company Number: US-MERCK-0306USA00766

PATIENT
  Age: 67 Year
  Sex: Female

DRUGS (9)
  1. VIOXX [Suspect]
     Route: 048
     Dates: start: 20000101
  2. CAPTOPRIL MSD [Concomitant]
     Route: 048
     Dates: start: 20000101
  3. SYNTHROID [Concomitant]
     Route: 065
     Dates: start: 20000101
  4. PRILOSEC [Concomitant]
     Route: 048
     Dates: start: 20000101
  5. HUMULIN [Concomitant]
     Route: 065
     Dates: start: 20000101
  6. PLAVIX [Suspect]
     Route: 065
     Dates: start: 20000101
  7. GLUCOTROL XL [Concomitant]
     Route: 065
     Dates: start: 20000101
  8. EVISTA [Concomitant]
     Route: 065
     Dates: start: 20000101
  9. AMITRIPTYLINE HYDROCHLORIDE [Concomitant]
     Route: 065
     Dates: start: 20000101

REACTIONS (24)
  - ADVERSE EVENT [None]
  - AMYOTROPHY [None]
  - ANGINA PECTORIS [None]
  - ATHEROSCLEROSIS [None]
  - CEREBRAL ARTERY STENOSIS [None]
  - CEREBRAL INFARCTION [None]
  - CEREBROVASCULAR ACCIDENT [None]
  - COAGULOPATHY [None]
  - CONVULSION [None]
  - CORONARY ARTERY ATHEROSCLEROSIS [None]
  - DIABETES MELLITUS INADEQUATE CONTROL [None]
  - DIABETIC NEUROPATHY [None]
  - DIVERTICULUM [None]
  - DIZZINESS [None]
  - GASTRITIS [None]
  - GASTROINTESTINAL HAEMORRHAGE [None]
  - HAEMORRHOIDAL HAEMORRHAGE [None]
  - HYPERTENSION [None]
  - ORTHOSTATIC HYPOTENSION [None]
  - PHARYNGITIS [None]
  - RESPIRATORY TRACT INFECTION [None]
  - SUBCUTANEOUS ABSCESS [None]
  - SYNCOPE [None]
  - UPPER RESPIRATORY TRACT INFECTION [None]
